FAERS Safety Report 25267209 (Version 2)
Quarter: 2025Q2

REPORT INFORMATION
  Report Type: Spontaneous
  Country: BE (occurrence: BE)
  Receive Date: 20250505
  Receipt Date: 20250514
  Transmission Date: 20250717
  Serious: Yes (Hospitalization, Other)
  Sender: SANOFI AVENTIS
  Company Number: BE-SA-2025SA125027

PATIENT
  Age: 64 Year
  Sex: Male

DRUGS (2)
  1. DUPIXENT [Suspect]
     Active Substance: DUPILUMAB
     Indication: Asthma
     Route: 058
     Dates: start: 20250327, end: 2025
  2. DUPIXENT [Suspect]
     Active Substance: DUPILUMAB
     Indication: Chronic rhinosinusitis with nasal polyps

REACTIONS (17)
  - Nasal abscess [Recovered/Resolved]
  - Tracheobronchitis [Recovered/Resolved]
  - Mucosal inflammation [Recovered/Resolved]
  - Lymphadenopathy [Recovered/Resolved]
  - Sputum increased [Recovered/Resolved]
  - Breath sounds abnormal [Recovered/Resolved]
  - Night sweats [Recovered/Resolved]
  - Cough [Recovered/Resolved]
  - Bacterial infection [Recovered/Resolved]
  - Tremor [Unknown]
  - Viral infection [Recovered/Resolved]
  - Secretion discharge [Recovered/Resolved]
  - Malaise [Recovered/Resolved]
  - Wheezing [Recovered/Resolved]
  - Liver function test abnormal [Unknown]
  - Microcytic anaemia [Unknown]
  - Platelet count increased [Unknown]

NARRATIVE: CASE EVENT DATE: 20250101
